FAERS Safety Report 4880867-3 (Version None)
Quarter: 2005Q4

REPORT INFORMATION
  Report Type: 
  Country: None (occurrence: None)
  Receive Date: 20051223
  Receipt Date: 20051031
  Transmission Date: 20060501
  Serious: No
  Sender: FDA-Public Use
  Company Number: 05P-163-0316997-00

PATIENT
  Sex: 0

DRUGS (1)
  1. HUMIRA [Suspect]
     Dosage: 40 MG, 1 IN 2 WKS, SUBCUTANEOUS
     Route: 058

REACTIONS (1)
  - IMPAIRED GASTRIC EMPTYING [None]
